FAERS Safety Report 19809286 (Version 1)
Quarter: 2021Q3

REPORT INFORMATION
  Report Type: Spontaneous
  Country: US (occurrence: US)
  Receive Date: 20210909
  Receipt Date: 20210909
  Transmission Date: 20211014
  Serious: Yes (Other)
  Sender: FDA-Public Use
  Company Number: None

PATIENT
  Age: 95 Year
  Sex: Female
  Weight: 45 kg

DRUGS (7)
  1. ARMOUR THYROID 60MG DAILY [Concomitant]
  2. FERROUS SULPHATE 325MG EVERY OTHER DAY [Concomitant]
  3. INFED [Suspect]
     Active Substance: IRON DEXTRAN
     Indication: IRON DEFICIENCY ANAEMIA
     Dosage: ?          OTHER FREQUENCY:ONCE;?
     Route: 041
     Dates: start: 20210825, end: 20210825
  4. CYANOCOBALAMIN 1,000MCG DAILY [Concomitant]
  5. VITAMIN D 1,000 UT DAILY [Concomitant]
  6. MELOXICAM 15MG DAILY [Concomitant]
  7. VALSARTAN?HYDROCHLOROTHIAZIDE 320?12.5 MG DAILY [Concomitant]

REACTIONS (4)
  - Chest discomfort [None]
  - Diarrhoea [None]
  - Respiratory rate increased [None]
  - Dyspnoea [None]

NARRATIVE: CASE EVENT DATE: 20210825
